FAERS Safety Report 8559155-X (Version None)
Quarter: 2012Q3

REPORT INFORMATION
  Report Type: 
  Country: None (occurrence: None)
  Receive Date: 20120802
  Receipt Date: 20120726
  Transmission Date: 20120928
  Serious: Yes (Other)
  Sender: FDA-Public Use
  Company Number: US-AMGEN-USASP2012045332

PATIENT
  Age: 52 Year
  Sex: Male

DRUGS (2)
  1. XGEVA [Suspect]
     Indication: PROPHYLAXIS
  2. XGEVA [Suspect]
     Indication: PROSTATE CANCER METASTATIC
     Dosage: 120 MG, Q4WK

REACTIONS (2)
  - PROSTATE CANCER [None]
  - OSTEONECROSIS OF JAW [None]
